FAERS Safety Report 8084577-3 (Version None)
Quarter: 2012Q1

REPORT INFORMATION
  Report Type: 
  Country: None (occurrence: None)
  Receive Date: 20120128
  Receipt Date: 20110311
  Transmission Date: 20120608
  Serious: No
  Sender: FDA-Public Use
  Company Number: US-ABBOTT-11P-163-0712104-00

PATIENT
  Sex: Male
  Weight: 104.42 kg

DRUGS (2)
  1. IBUPROFEN (ADVIL) [Concomitant]
     Indication: PAIN
  2. HUMIRA [Suspect]
     Indication: PSORIASIS
     Route: 058
     Dates: start: 20091001

REACTIONS (7)
  - PAIN [None]
  - EYE PRURITUS [None]
  - NASAL CONGESTION [None]
  - INFLUENZA LIKE ILLNESS [None]
  - NASOPHARYNGITIS [None]
  - LACRIMATION INCREASED [None]
  - DEVICE MALFUNCTION [None]
